FAERS Safety Report 11538817 (Version 1)
Quarter: 2015Q3

REPORT INFORMATION
  Report Type: Spontaneous
  Country: US (occurrence: US)
  Receive Date: 20150923
  Receipt Date: 20150923
  Transmission Date: 20151125
  Serious: Yes (Hospitalization, Other)
  Sender: FDA-Public Use
  Company Number: US-ROCHE-1636981

PATIENT
  Age: 60 Year
  Sex: Male
  Weight: 78.7 kg

DRUGS (2)
  1. ACTIVASE [Suspect]
     Active Substance: ALTEPLASE
     Indication: ISCHAEMIC STROKE
     Route: 042
     Dates: start: 20150913, end: 20150913
  2. CARDENE [Concomitant]
     Active Substance: NICARDIPINE HYDROCHLORIDE

REACTIONS (3)
  - Cerebral haemorrhage [Not Recovered/Not Resolved]
  - Haemorrhagic transformation stroke [Not Recovered/Not Resolved]
  - Blood pressure systolic increased [Unknown]

NARRATIVE: CASE EVENT DATE: 20150913
